FAERS Safety Report 19816046 (Version 1)
Quarter: 2021Q3

REPORT INFORMATION
  Report Type: Spontaneous
  Country: CA (occurrence: CA)
  Receive Date: 20210910
  Receipt Date: 20210910
  Transmission Date: 20211014
  Serious: Yes (Death, Other)
  Sender: FDA-Public Use
  Company Number: CA-TEVA-2021-CA-1949507

PATIENT
  Age: 80 Year
  Sex: Male
  Weight: 69 kg

DRUGS (56)
  1. AMIODARONE [Suspect]
     Active Substance: AMIODARONE
     Indication: DRUG THERAPY
     Dosage: 150 MILLIGRAM DAILY;
     Route: 065
  2. BISACODYL. [Suspect]
     Active Substance: BISACODYL
     Indication: CONSTIPATION
     Route: 054
  3. GLUCOSE [Suspect]
     Active Substance: DEXTROSE
     Indication: NUTRITIONAL SUPPLEMENTATION
     Route: 042
  4. ASCORBIC ACID\PEG?3350\POTASSIUM CHLORIDE\SODIUM (ASCORBATE/CHLORIDE/SULFATE) [Suspect]
     Active Substance: ASCORBIC ACID\POLYETHYLENE GLYCOL 3350\POTASSIUM CHLORIDE\SODIUM ASCORBATE\SODIUM CHLORIDE\SODIUM SULFATE
     Indication: CONSTIPATION
     Dosage: 17 GRAM DAILY;
     Route: 065
  5. MANNITOL. [Suspect]
     Active Substance: MANNITOL
     Indication: NUTRITIONAL SUPPLEMENTATION
     Route: 042
  6. ONDANSETRON HYDROCHLORIDE. [Suspect]
     Active Substance: ONDANSETRON HYDROCHLORIDE
     Indication: NAUSEA
     Dosage: 36 MILLIGRAM DAILY;
     Route: 042
  7. PYRIDOXINE HYDROCHLORIDE. [Suspect]
     Active Substance: PYRIDOXINE HYDROCHLORIDE
     Indication: VITAMIN SUPPLEMENTATION
     Route: 048
  8. ZOCOR [Suspect]
     Active Substance: SIMVASTATIN
     Indication: BLOOD CHOLESTEROL INCREASED
     Dosage: 40 MILLIGRAM DAILY;
     Route: 048
  9. ONDANSETRON HYDROCHLORIDE. [Suspect]
     Active Substance: ONDANSETRON HYDROCHLORIDE
     Indication: NAUSEA
     Dosage: 120 MILLIGRAM DAILY;
     Route: 065
  10. SALBUTAMOL [Suspect]
     Active Substance: ALBUTEROL
     Indication: CHRONIC OBSTRUCTIVE PULMONARY DISEASE
     Route: 065
  11. AMIODARONE [Suspect]
     Active Substance: AMIODARONE
     Indication: VENTRICULAR FIBRILLATION
     Route: 065
  12. DOBUTAMINE [Suspect]
     Active Substance: DOBUTAMINE HYDROCHLORIDE
     Indication: CARDIOGENIC SHOCK
     Route: 042
  13. HYDROMORPHONE [Suspect]
     Active Substance: HYDROMORPHONE
     Indication: ANALGESIC THERAPY
     Dosage: 6 MILLIGRAM DAILY;
     Route: 058
  14. METRONIDAZOLE. [Suspect]
     Active Substance: METRONIDAZOLE
     Indication: BACTERIAL INFECTION
     Dosage: 1500 MILLIGRAM DAILY;
     Route: 065
  15. SODIUM FERRIC GLUCONATE COMPLEX. [Suspect]
     Active Substance: SODIUM FERRIC GLUCONATE COMPLEX
     Indication: IRON DEFICIENCY
     Route: 042
  16. AMIODARONE HYDROCHLORIDE. [Suspect]
     Active Substance: AMIODARONE HYDROCHLORIDE
     Indication: VENTRICULAR FIBRILLATION
     Route: 065
  17. AMIODARONE HYDROCHLORIDE. [Suspect]
     Active Substance: AMIODARONE HYDROCHLORIDE
     Dosage: 150 MILLIGRAM DAILY;
     Route: 065
  18. ALLOPURINOL. [Suspect]
     Active Substance: ALLOPURINOL
     Indication: BLOOD URIC ACID INCREASED
     Route: 048
  19. DIPROSONE [Suspect]
     Active Substance: BETAMETHASONE DIPROPIONATE
     Indication: SWELLING
     Route: 061
  20. LANTHANUM CARBONATE HYDRATE [Suspect]
     Active Substance: LANTHANUM CARBONATE
     Indication: BLOOD PHOSPHORUS INCREASED
     Route: 048
  21. NOREPINEPHRINE. [Suspect]
     Active Substance: NOREPINEPHRINE
     Indication: STRESS
     Route: 042
  22. SODIUM BICARBONATE. [Suspect]
     Active Substance: SODIUM BICARBONATE
     Indication: NUTRITIONAL SUPPLEMENTATION
     Route: 042
  23. BETA?CAROTENE [Suspect]
     Active Substance: BETA CAROTENE
     Indication: NUTRITIONAL SUPPLEMENTATION
     Route: 042
  24. CALCITRIOL. [Suspect]
     Active Substance: CALCITRIOL
     Indication: VITAMIN D
     Route: 048
  25. INSULIN ASPART [Suspect]
     Active Substance: INSULIN ASPART
     Indication: DIABETES MELLITUS
     Route: 058
  26. INSULIN DEGLUDEC [Suspect]
     Active Substance: INSULIN DEGLUDEC
     Indication: DIABETES MELLITUS
     Route: 058
  27. MELATONIN [Suspect]
     Active Substance: MELATONIN
     Indication: SLEEP DISORDER THERAPY
     Route: 048
  28. ONDANSETRON HYDROCHLORIDE. [Suspect]
     Active Substance: ONDANSETRON HYDROCHLORIDE
     Indication: VOMITING
     Route: 065
  29. LANSOPRAZOLE. [Suspect]
     Active Substance: LANSOPRAZOLE
     Indication: ANTACID THERAPY
     Dosage: 30 MILLIGRAM DAILY;
     Route: 048
  30. ARANESP [Suspect]
     Active Substance: DARBEPOETIN ALFA
     Indication: VENTRICULAR FIBRILLATION
     Route: 042
  31. DISTIGMINE BROMIDE [Suspect]
     Active Substance: DISTIGMINE BROMIDE
     Indication: DYSPNOEA
     Route: 048
  32. CARBOHYDRATES NOS/FATS NOS/FATTY ACIDS NOS/FIBRE, DIETARY/MINERALS NOS/PROTEINS NOS/VITAMINS NOS [DIETARY SUPPLEMENT] [Suspect]
     Active Substance: DIETARY SUPPLEMENT
     Indication: VITAMIN SUPPLEMENTATION
     Route: 065
  33. HEPARIN SODIUM. [Suspect]
     Active Substance: HEPARIN SODIUM
     Indication: ANTICOAGULANT THERAPY
     Route: 042
  34. POTASSIUM CHLORIDE. [Suspect]
     Active Substance: POTASSIUM CHLORIDE
     Indication: NUTRITIONAL SUPPLEMENTATION
     Route: 042
  35. SODIUM CHLORIDE. [Suspect]
     Active Substance: SODIUM CHLORIDE
     Indication: NUTRITIONAL SUPPLEMENTATION
     Route: 042
  36. SODIUM CITRATE. [Suspect]
     Active Substance: SODIUM CITRATE
     Indication: THROMBOSIS
     Route: 065
  37. SODIUM FERRIC GLUCONATE COMPLEX. [Suspect]
     Active Substance: SODIUM FERRIC GLUCONATE COMPLEX
     Route: 042
  38. WARFARIN [Suspect]
     Active Substance: WARFARIN
     Indication: THROMBOSIS
     Route: 048
  39. ACETAMINOPHEN. [Suspect]
     Active Substance: ACETAMINOPHEN
     Indication: ANALGESIC THERAPY
     Dosage: 650 MILLIGRAM DAILY;
     Route: 048
  40. GABAPENTIN. [Suspect]
     Active Substance: GABAPENTIN
     Indication: NEURALGIA
     Route: 048
  41. ATROVENT [Suspect]
     Active Substance: IPRATROPIUM BROMIDE
     Indication: DYSPNOEA
     Route: 065
  42. DEXTROSE. [Suspect]
     Active Substance: DEXTROSE
     Indication: NUTRITIONAL SUPPLEMENTATION
     Route: 042
  43. FLUTICASONE FUROATE/VILANTEROL TRIFENATATE [Suspect]
     Active Substance: FLUTICASONE FUROATE\VILANTEROL TRIFENATATE
     Indication: PRODUCT USED FOR UNKNOWN INDICATION
     Route: 065
  44. MACROGOL 3350 [Suspect]
     Active Substance: POLYETHYLENE GLYCOL 3350
     Indication: NUTRITIONAL SUPPLEMENTATION
     Route: 042
  45. SODIUM PHOSPHATE MONOBASIC [Suspect]
     Active Substance: SODIUM PHOSPHATE, MONOBASIC
     Indication: CONSTIPATION
     Route: 054
  46. SODIUM PICOSULFATE [Suspect]
     Active Substance: SODIUM PICOSULFATE
     Indication: CONSTIPATION
     Route: 054
  47. VASOPRESSIN. [Suspect]
     Active Substance: VASOPRESSIN
     Indication: DRUG THERAPY
     Route: 042
  48. CEFTRIAXONE. [Suspect]
     Active Substance: CEFTRIAXONE
     Indication: BACTERIAL INFECTION
     Dosage: 2 GRAM DAILY;
     Route: 042
  49. ONDANSETRON HYDROCHLORIDE. [Suspect]
     Active Substance: ONDANSETRON HYDROCHLORIDE
     Indication: VOMITING
     Route: 065
  50. CITRIC ACID [Suspect]
     Active Substance: CITRIC ACID MONOHYDRATE
     Indication: NUTRITIONAL SUPPLEMENTATION
     Route: 042
  51. PHYTONADIONE. [Suspect]
     Active Substance: PHYTONADIONE
     Indication: VITAMIN SUPPLEMENTATION
     Route: 042
  52. UMECLIDINIUM BROMIDE/VILANTEROL TRIFENATATE [Suspect]
     Active Substance: UMECLIDINIUM BROMIDE\VILANTEROL TRIFENATATE
     Indication: DYSPNOEA
     Route: 048
  53. DALTEPARIN SODIUM [Suspect]
     Active Substance: DALTEPARIN SODIUM
     Indication: PULMONARY EMBOLISM
     Route: 065
  54. HEPARIN SODIUM. [Suspect]
     Active Substance: HEPARIN SODIUM
     Indication: PRODUCT USED FOR UNKNOWN INDICATION
     Route: 042
  55. MACROGOL 3350 [Suspect]
     Active Substance: POLYETHYLENE GLYCOL 3350
     Indication: CONSTIPATION
     Dosage: 17 GRAM DAILY;
     Route: 048
  56. MALTOSE [Suspect]
     Active Substance: MALTOSE
     Indication: NUTRITIONAL SUPPLEMENTATION
     Route: 042

REACTIONS (15)
  - Ascites [Fatal]
  - Vomiting [Fatal]
  - Abdominal pain [Fatal]
  - Sepsis [Fatal]
  - Stress [Fatal]
  - Appendicitis [Fatal]
  - General physical health deterioration [Fatal]
  - Off label use [Fatal]
  - Abdominal distension [Fatal]
  - Cardiogenic shock [Fatal]
  - Constipation [Fatal]
  - Multiple organ dysfunction syndrome [Fatal]
  - Nausea [Fatal]
  - Appendicolith [Fatal]
  - Hyponatraemia [Fatal]
